FAERS Safety Report 18372873 (Version 1)
Quarter: 2020Q4

REPORT INFORMATION
  Report Type: Spontaneous
  Country: JP (occurrence: JP)
  Receive Date: 20201012
  Receipt Date: 20201012
  Transmission Date: 20210114
  Serious: Yes (Death, Other)
  Sender: FDA-Public Use
  Company Number: JP-OTSUKA-2018_035319

PATIENT

DRUGS (2)
  1. SAMSCA [Suspect]
     Active Substance: TOLVAPTAN
     Indication: OEDEMA DUE TO HEPATIC DISEASE
     Dosage: UNK
     Route: 065
  2. SAMSCA [Suspect]
     Active Substance: TOLVAPTAN
     Indication: HEPATIC CIRRHOSIS

REACTIONS (19)
  - Hepatic cirrhosis [Fatal]
  - Renal impairment [Fatal]
  - Hyperkalaemia [Unknown]
  - Peritonitis bacterial [Fatal]
  - Ascites [Fatal]
  - Hypernatraemia [Unknown]
  - Hepatorenal syndrome [Fatal]
  - Hepatic failure [Fatal]
  - Hepatocellular carcinoma [Fatal]
  - Rapid correction of hyponatraemia [Unknown]
  - Renal impairment [Unknown]
  - Haemothorax [Fatal]
  - Gastrointestinal haemorrhage [Fatal]
  - Hepatic encephalopathy [Unknown]
  - Blood urea increased [Unknown]
  - Blood creatinine increased [Unknown]
  - Dehydration [Unknown]
  - Blood urea increased [Fatal]
  - Thirst [Unknown]
